FAERS Safety Report 9740309 (Version 3)
Quarter: 2014Q1

REPORT INFORMATION
  Report Type: Spontaneous
  Country: JP (occurrence: JP)
  Receive Date: 20131209
  Receipt Date: 20140121
  Transmission Date: 20141002
  Serious: Yes (Death, Other)
  Sender: FDA-Public Use
  Company Number: JP-PFIZER INC-2013347052

PATIENT
  Age: 82 Year
  Sex: Female

DRUGS (1)
  1. ZITHROMAC [Suspect]
     Indication: PNEUMONIA
     Dosage: 500 MG, DAILY
     Route: 041
     Dates: start: 20131114, end: 20131114

REACTIONS (3)
  - Cardiac failure [Fatal]
  - Interstitial lung disease [Fatal]
  - Choking [Unknown]
